FAERS Safety Report 7218261-2 (Version None)
Quarter: 2011Q1

REPORT INFORMATION
  Report Type: 
  Country: None (occurrence: None)
  Receive Date: 20110110
  Receipt Date: 20110107
  Transmission Date: 20110831
  Serious: Yes (Death, Hospitalization)
  Sender: FDA-Public Use
  Company Number: US-AMGEN-KDC438007

PATIENT

DRUGS (3)
  1. FLUOROURACIL [Suspect]
     Indication: PANCREATIC CARCINOMA
     Dosage: 11324 MG, UNK
     Dates: start: 20100811
  2. PANITUMUMAB [Suspect]
     Indication: PANCREATIC CARCINOMA
     Dosage: 8012 MG, UNK
     Dates: start: 20100811
  3. RADIATION THERAPY [Suspect]
     Dosage: UNK UNK, UNK
     Dates: start: 20100811

REACTIONS (4)
  - DEHYDRATION [None]
  - DYSPHAGIA [None]
  - DEATH [None]
  - FATIGUE [None]
